FAERS Safety Report 14894778 (Version 1)
Quarter: 2018Q2

REPORT INFORMATION
  Report Type: Spontaneous
  Country: US (occurrence: US)
  Receive Date: 20180515
  Receipt Date: 20180515
  Transmission Date: 20180711
  Serious: No
  Sender: FDA-Public Use
  Company Number: US-APOTEX-2018AP007401

PATIENT
  Age: 30 Year
  Sex: Male

DRUGS (6)
  1. QUETIAPINE. [Suspect]
     Active Substance: QUETIAPINE
     Indication: POST-TRAUMATIC STRESS DISORDER
     Dosage: 100 MG, 1D
     Route: 065
  2. RISPERIDONE. [Suspect]
     Active Substance: RISPERIDONE
     Indication: POST-TRAUMATIC STRESS DISORDER
     Route: 065
  3. PAROXETINE. [Suspect]
     Active Substance: PAROXETINE
     Indication: POST-TRAUMATIC STRESS DISORDER
     Route: 065
  4. SERTRALINE [Suspect]
     Active Substance: SERTRALINE HYDROCHLORIDE
     Indication: POST-TRAUMATIC STRESS DISORDER
     Route: 065
  5. LORAZEPAM. [Suspect]
     Active Substance: LORAZEPAM
     Indication: POST-TRAUMATIC STRESS DISORDER
     Dosage: 1 MG, QID
     Route: 065
  6. OLANZAPINE. [Suspect]
     Active Substance: OLANZAPINE
     Indication: POST-TRAUMATIC STRESS DISORDER
     Route: 065

REACTIONS (1)
  - Drug ineffective [Unknown]
